FAERS Safety Report 12470045 (Version 2)
Quarter: 2016Q3

REPORT INFORMATION
  Report Type: Report from Study
  Country: BR (occurrence: BR)
  Receive Date: 20160616
  Receipt Date: 20160901
  Transmission Date: 20161109
  Serious: Yes (Other)
  Sender: FDA-Public Use
  Company Number: PHHY2016BR080496

PATIENT
  Sex: Female
  Weight: 60 kg

DRUGS (9)
  1. DAFLON                             /01026201/ [Concomitant]
     Active Substance: DIOSMIN\HESPERIDIN
     Indication: PERIPHERAL VASCULAR DISORDER
     Dosage: 1 DF, QD (STARTED USING 2 MONTHS AGO)
     Route: 048
  2. CALCIUM +D3 [Concomitant]
     Active Substance: CALCIUM\CHOLECALCIFEROL
     Indication: OSTEOARTHRITIS
     Dosage: 1 DF (CALCIUM 1250 MG, COLECALCIFEROL 400 IU), QD (STARTED USING 2 YEARS AGO)
     Route: 048
  3. FORASEQ [Suspect]
     Active Substance: BUDESONIDE\FORMOTEROL FUMARATE
     Indication: ASTHMA
     Dosage: 1 DF (200 UG), BID (SHE ASPIRED A CAPSULE, AND 30 MINUTES LATER SHE ASPIRED ANOTHER CAPSULE)
     Route: 055
  4. LOSARTAN. [Concomitant]
     Active Substance: LOSARTAN
     Indication: HYPERTENSION
     Dosage: 50 MG, BID (STARTED USING MORE THAN 2 YEARS AGO)
     Route: 048
  5. ASA [Concomitant]
     Active Substance: ASPIRIN
     Indication: ANTICOAGULANT THERAPY
     Dosage: 100 MG, QD (STARTED USING 2 OR 3 MONTHS AGO)
     Route: 048
  6. FORASEQ [Suspect]
     Active Substance: BUDESONIDE\FORMOTEROL FUMARATE
     Dosage: 1 DF (400 UG), BID
     Route: 065
  7. METFORMIN [Concomitant]
     Active Substance: METFORMIN HYDROCHLORIDE
     Indication: GLUCOSE TOLERANCE IMPAIRED
     Dosage: 850 MG, QD (STARETD USING 2 OR 3 MONTHS BACK)
     Route: 048
  8. FORASEQ [Suspect]
     Active Substance: BUDESONIDE\FORMOTEROL FUMARATE
     Dosage: 1 DF (200 UG), Q12H
     Route: 055
  9. FORASEQ [Suspect]
     Active Substance: BUDESONIDE\FORMOTEROL FUMARATE
     Indication: BRONCHITIS CHRONIC
     Dosage: 200 UG, QID (MORE THAN 10 YEARS AGO)
     Route: 055

REACTIONS (13)
  - Fatigue [Unknown]
  - Dyspnoea [Unknown]
  - Memory impairment [Unknown]
  - Blood pressure increased [Unknown]
  - Visual impairment [Unknown]
  - Bronchitis chronic [Unknown]
  - Blood cholesterol increased [Unknown]
  - Asthma [Unknown]
  - Chest discomfort [Unknown]
  - Appendicitis [Unknown]
  - Musculoskeletal chest pain [Unknown]
  - Retinal vascular thrombosis [Unknown]
  - Malaise [Unknown]
